FAERS Safety Report 8180242-2 (Version None)
Quarter: 2012Q1

REPORT INFORMATION
  Report Type: 
  Country: None (occurrence: None)
  Receive Date: 20120302
  Receipt Date: 20101109
  Transmission Date: 20120608
  Serious: No
  Sender: FDA-Public Use
  Company Number: US-GLAXOSMITHKLINE-A0861698A

PATIENT
  Age: 63 Year
  Sex: Female

DRUGS (2)
  1. NO CONCURRENT MEDICATION [Concomitant]
  2. OLUX E [Suspect]
     Indication: DERMATOSIS
     Route: 061
     Dates: start: 20100427, end: 20100501

REACTIONS (2)
  - CONDITION AGGRAVATED [None]
  - PRODUCT QUALITY ISSUE [None]
